FAERS Safety Report 5914119-7 (Version None)
Quarter: 2008Q4

REPORT INFORMATION
  Report Type: 
  Country: None (occurrence: None)
  Receive Date: 20081009
  Receipt Date: 20081002
  Transmission Date: 20090506
  Serious: Yes (Hospitalization)
  Sender: FDA-Public Use
  Company Number: US-SANOFI-SYNTHELABO-F01200601485

PATIENT
  Sex: Female

DRUGS (7)
  1. CAPECITABINE [Suspect]
     Route: 048
     Dates: start: 20060512, end: 20060530
  2. BEVACIZUMAB [Suspect]
     Route: 042
     Dates: start: 20060512, end: 20060609
  3. PREVACID [Concomitant]
     Dosage: UNK
     Route: 065
     Dates: start: 20060615
  4. OXALIPLATIN [Suspect]
     Indication: COLORECTAL CANCER METASTATIC
     Route: 042
     Dates: start: 20060512, end: 20060609
  5. LORTAB [Concomitant]
     Dosage: UNK
     Route: 065
     Dates: start: 20060530, end: 20060530
  6. COLACE [Concomitant]
     Dosage: UNK
     Route: 065
     Dates: start: 20060526, end: 20060531
  7. COUMADIN [Concomitant]
     Dosage: UNK
     Route: 065
     Dates: start: 20060511, end: 20060531

REACTIONS (2)
  - GASTROINTESTINAL FISTULA [None]
  - WOUND COMPLICATION [None]
